FAERS Safety Report 23492701 (Version 1)
Quarter: 2024Q1

REPORT INFORMATION
  Report Type: Spontaneous
  Country: CH (occurrence: CH)
  Receive Date: 20240207
  Receipt Date: 20240207
  Transmission Date: 20240410
  Serious: Yes (Other)
  Sender: FDA-Public Use
  Company Number: None

PATIENT
  Age: 65 Year
  Sex: Male
  Weight: 92.8 kg

DRUGS (11)
  1. BACTRIM [Suspect]
     Active Substance: SULFAMETHOXAZOLE\TRIMETHOPRIM
     Indication: Antibiotic prophylaxis
     Dosage: MO, MI, FR, 800/160 MILLIGRAM ?WITHIN A TIME INTERVAL OF 48 HOURS
     Route: 048
     Dates: end: 20240101
  2. PREDNISOLONE [Concomitant]
     Active Substance: PREDNISOLONE
  3. ELIQUIS [Concomitant]
     Active Substance: APIXABAN
  4. MEROPENEM [Suspect]
     Active Substance: MEROPENEM
     Indication: Pneumocystis jirovecii pneumonia
     Route: 042
     Dates: start: 20240102, end: 20240106
  5. FRESUBIN PROTEIN ENERGY [Concomitant]
  6. BACTRIM [Suspect]
     Active Substance: SULFAMETHOXAZOLE\TRIMETHOPRIM
     Indication: Pneumocystis jirovecii pneumonia
     Dosage: INF CONC
     Route: 042
     Dates: start: 20240102, end: 20240109
  7. BACTRIM [Suspect]
     Active Substance: SULFAMETHOXAZOLE\TRIMETHOPRIM
     Indication: Pneumocystis jirovecii pneumonia
     Dosage: INF CONC
     Route: 042
     Dates: start: 20240112, end: 20240112
  8. BACTRIM [Suspect]
     Active Substance: SULFAMETHOXAZOLE\TRIMETHOPRIM
     Indication: Pneumocystis jirovecii pneumonia
     Dosage: INF CONC
     Route: 042
     Dates: start: 20240109, end: 20240111
  9. DOXYCYCLINE [Suspect]
     Active Substance: DOXYCYCLINE
     Indication: Pneumocystis jirovecii pneumonia
     Route: 065
     Dates: start: 20240102, end: 20240105
  10. LASIX [Concomitant]
     Active Substance: FUROSEMIDE
  11. PANTOPRAZOLE SODIUM [Concomitant]
     Active Substance: PANTOPRAZOLE SODIUM

REACTIONS (2)
  - Liver disorder [Not Recovered/Not Resolved]
  - Hyperkalaemia [Unknown]
